FAERS Safety Report 5907761-0 (Version None)
Quarter: 2008Q3

REPORT INFORMATION
  Report Type: 
  Country: None (occurrence: None)
  Receive Date: 20080929
  Receipt Date: 20071015
  Transmission Date: 20090109
  Serious: Yes (Other)
  Sender: FDA-Public Use
  Company Number: 6045684

PATIENT
  Age: 22 Year
  Sex: Male

DRUGS (7)
  1. BISOMERCK PLUS 5 MG/12.5 MG (TABLET) HYDROCHLOROTHIAZIDE, BISOPROLOL F [Suspect]
     Indication: DRUG USE FOR UNKNOWN INDICATION
     Dosage: 30 DOSAGE FORMS
     Route: 048
     Dates: start: 20071012
  2. ALCOHOL (ETHANOL) [Suspect]
     Indication: DRUG USE FOR UNKNOWN INDICATION
     Route: 048
     Dates: start: 20071012
  3. ASS 100MG(TABLET) (ACETYLSALICYLIC ACID) [Suspect]
     Indication: DRUG USE FOR UNKNOWN INDICATION
     Dosage: 20 DOSAGE FORMS
     Route: 048
     Dates: start: 20071012
  4. DATURA SUAVEOLENS [Suspect]
     Indication: DRUG USE FOR UNKNOWN INDICATION
     Route: 048
     Dates: start: 20071012
  5. SOLIDAGO (HERBAL EXTRACT NOS) [Suspect]
     Indication: DRUG USE FOR UNKNOWN INDICATION
     Dosage: 50 ML
     Route: 048
     Dates: start: 20071012
  6. TRAUMEEL S (HOMEOPATICS NOS) [Suspect]
     Indication: DRUG USE FOR UNKNOWN INDICATION
     Dosage: 30 ML
     Route: 048
     Dates: start: 20071012
  7. URTICA ARSENICOSUM (URTICA SPP. EXTRACT) [Suspect]
     Indication: DRUG USE FOR UNKNOWN INDICATION
     Dosage: 50 ML, ORAL
     Route: 048
     Dates: start: 20071012

REACTIONS (3)
  - ATAXIA [None]
  - BRADYCARDIA [None]
  - INTENTIONAL OVERDOSE [None]
